FAERS Safety Report 4864068-0 (Version None)
Quarter: 2005Q4

REPORT INFORMATION
  Report Type: 
  Country: None (occurrence: None)
  Receive Date: 20051219
  Receipt Date: 20051213
  Transmission Date: 20060501
  Serious: Yes (Other)
  Sender: FDA-Public Use
  Company Number: 2005167631

PATIENT
  Sex: Female

DRUGS (1)
  1. CELEBREX [Suspect]
     Indication: ILL-DEFINED DISORDER

REACTIONS (5)
  - BREAST CANCER [None]
  - DRUG INEFFECTIVE [None]
  - PNEUMONIA [None]
  - SPINAL FUSION SURGERY [None]
  - SURGERY [None]
